FAERS Safety Report 8890076 (Version 1)
Quarter: 2012Q4

REPORT INFORMATION
  Report Type: 
  Country: US (occurrence: US)
  Receive Date: 20121107
  Receipt Date: 20121107
  Transmission Date: 20130627
  Serious: Yes (Other)
  Sender: FDA-Public Use
  Company Number: US-009507513-1210USA011911

PATIENT

DRUGS (2)
  1. DEXAMETHASONE [Suspect]
     Indication: ACUTE LYMPHOCYTIC LEUKAEMIA
     Dosage: on days 0-20 or on days 0-6 and 14-20
     Route: 048
  2. PREDNISONE [Concomitant]
     Indication: ACUTE LYMPHOCYTIC LEUKAEMIA
     Dosage: 40 mg/m2, for 5 days every 4 weeks

REACTIONS (1)
  - Osteonecrosis [Unknown]
